FAERS Safety Report 7380254-2 (Version None)
Quarter: 2011Q1

REPORT INFORMATION
  Report Type: 
  Country: None (occurrence: None)
  Receive Date: 20110329
  Receipt Date: 20110317
  Transmission Date: 20110831
  Serious: Yes (Other)
  Sender: FDA-Public Use
  Company Number: US-US-EMD SERONO, INC.-7048714

PATIENT
  Sex: Female

DRUGS (3)
  1. ALEVE [Suspect]
     Indication: HEADACHE
  2. EIGHT HOUR TYLENOL [Concomitant]
     Indication: PREMEDICATION
  3. REBIF [Suspect]
     Indication: MULTIPLE SCLEROSIS
     Route: 058
     Dates: start: 20100319

REACTIONS (6)
  - MALAISE [None]
  - HEADACHE [None]
  - INJECTION SITE ERYTHEMA [None]
  - GASTROINTESTINAL HAEMORRHAGE [None]
  - FATIGUE [None]
  - INJECTION SITE PAIN [None]
